FAERS Safety Report 5914844-8 (Version None)
Quarter: 2008Q4

REPORT INFORMATION
  Report Type: 
  Country: None (occurrence: None)
  Receive Date: 20081010
  Receipt Date: 20081001
  Transmission Date: 20090506
  Serious: Yes (Other)
  Sender: FDA-Public Use
  Company Number: PHBS2007JP12450

PATIENT
  Sex: Female
  Weight: 17 kg

DRUGS (4)
  1. GLEEVEC [Suspect]
     Indication: CHRONIC MYELOID LEUKAEMIA
     Dosage: 300 MG/D
     Route: 048
     Dates: start: 20030707
  2. PREDONINE [Suspect]
     Indication: RASH
     Dosage: 7.5 MG/D
     Route: 048
     Dates: start: 20030101
  3. PREDONINE [Suspect]
     Dosage: 5 MG/D
     Route: 065
     Dates: start: 20050801
  4. FAMOTIDINE [Concomitant]
     Dosage: 10 MG/D
     Route: 048
     Dates: start: 20030101

REACTIONS (5)
  - FAILURE TO THRIVE [None]
  - HEADACHE [None]
  - HYPOGAMMAGLOBULINAEMIA [None]
  - RASH [None]
  - VOMITING [None]
